FAERS Safety Report 26080763 (Version 1)
Quarter: 2025Q4

REPORT INFORMATION
  Report Type: Spontaneous
  Country: MX (occurrence: MX)
  Receive Date: 20251124
  Receipt Date: 20251124
  Transmission Date: 20260118
  Serious: Yes (Hospitalization, Other)
  Sender: AMNEAL
  Company Number: MX-AMNEAL PHARMACEUTICALS-2025-AMRX-04540

PATIENT
  Age: 46 Year
  Sex: Male

DRUGS (1)
  1. TESTOSTERONE [Suspect]
     Active Substance: TESTOSTERONE
     Indication: Product used for unknown indication
     Dosage: 250 MG, EVERY TWO WEEKS
     Route: 030
     Dates: start: 2022, end: 202502

REACTIONS (5)
  - Atrioventricular block complete [Unknown]
  - Bundle branch block right [Unknown]
  - Left ventricular hypertrophy [Unknown]
  - Presyncope [Unknown]
  - Dyspnoea exertional [Unknown]

NARRATIVE: CASE EVENT DATE: 20240701
